FAERS Safety Report 24546630 (Version 1)
Quarter: 2024Q4

REPORT INFORMATION
  Report Type: Spontaneous
  Country: AU (occurrence: AU)
  Receive Date: 20241024
  Receipt Date: 20241024
  Transmission Date: 20250115
  Serious: Yes (Hospitalization)
  Sender: SAMSUNG BIOEPIS
  Company Number: AU-SAMSUNG BIOEPIS-SB-2024-31238

PATIENT
  Age: 77 Year
  Sex: Female

DRUGS (1)
  1. ADALIMUMAB [Suspect]
     Active Substance: ADALIMUMAB
     Indication: Product used for unknown indication

REACTIONS (5)
  - Demyelination [Not Recovered/Not Resolved]
  - Ataxia [Unknown]
  - Diplopia [Unknown]
  - Hypoaesthesia [Unknown]
  - Vertigo [Unknown]

NARRATIVE: CASE EVENT DATE: 20240801
